FAERS Safety Report 8583898-5 (Version None)
Quarter: 2012Q3

REPORT INFORMATION
  Report Type: 
  Country: None (occurrence: None)
  Receive Date: 20120810
  Receipt Date: 20120802
  Transmission Date: 20120928
  Serious: Yes (Hospitalization, Other)
  Sender: FDA-Public Use
  Company Number: BR-009507513-1208BRA002652

PATIENT

DRUGS (11)
  1. CEFTAZIDIME [Concomitant]
     Indication: PNEUMONIA
  2. VANCOMYCIN [Concomitant]
     Indication: URINARY TRACT INFECTION
  3. CEFTAZIDIME [Concomitant]
     Indication: SEPSIS
     Dosage: UNK, UNKNOWN
     Route: 065
     Dates: start: 20100830, end: 20100902
  4. MEROPENEM [Concomitant]
     Indication: BACTERIAL SEPSIS
     Dosage: UNK
     Dates: start: 20100908
  5. MEROPENEM [Concomitant]
     Indication: PNEUMONIA
  6. RIFAMPIN [Concomitant]
     Indication: BACTERIAL INFECTION
     Dosage: UNK UNK, UNKNOWN
     Route: 065
     Dates: start: 20100728, end: 20100905
  7. DIAZEPAM [Concomitant]
     Dosage: UNK
     Dates: start: 20100922
  8. VANCOMYCIN [Concomitant]
     Indication: BACTERIAL INFECTION
     Dosage: UNK, UNKNOWN
     Route: 065
     Dates: start: 20100728, end: 20100921
  9. RIFAMPIN [Concomitant]
     Indication: URINARY TRACT INFECTION
  10. IMIPENEM AND CILASTATIN [Suspect]
     Indication: BACTERIAL SEPSIS
     Dosage: UNK, UNKNOWN
     Route: 065
     Dates: start: 20100902, end: 20100908
  11. IMIPENEM AND CILASTATIN [Suspect]
     Indication: PNEUMONIA

REACTIONS (7)
  - PYREXIA [None]
  - CEREBRAL ATROPHY [None]
  - GLIOSIS [None]
  - SINUSITIS [None]
  - CONVULSION [None]
  - ALTERED STATE OF CONSCIOUSNESS [None]
  - ORAL CANDIDIASIS [None]
